FAERS Safety Report 8085585-9 (Version None)
Quarter: 2012Q1

REPORT INFORMATION
  Report Type: 
  Country: None (occurrence: None)
  Receive Date: 20120128
  Receipt Date: 20110401
  Transmission Date: 20120608
  Serious: No
  Sender: FDA-Public Use
  Company Number: US-ABBOTT-11P-163-0715895-00

PATIENT
  Age: 45 Year
  Sex: Male

DRUGS (3)
  1. IRON [Concomitant]
     Indication: MINERAL SUPPLEMENTATION
  2. CALCIUM [Concomitant]
     Indication: MINERAL SUPPLEMENTATION
  3. HUMIRA [Suspect]
     Indication: CROHN'S DISEASE
     Dates: start: 20110210

REACTIONS (3)
  - HEADACHE [None]
  - NASOPHARYNGITIS [None]
  - SINUS DISORDER [None]
